FAERS Safety Report 6639786-4 (Version None)
Quarter: 2010Q1

REPORT INFORMATION
  Report Type: 
  Country: None (occurrence: None)
  Receive Date: 20100318
  Receipt Date: 20100305
  Transmission Date: 20100710
  Serious: Yes (Death, Other)
  Sender: FDA-Public Use
  Company Number: US-BRISTOL-MYERS SQUIBB COMPANY-15006836

PATIENT
  Sex: Male

DRUGS (4)
  1. REYATAZ [Suspect]
     Route: 064
     Dates: start: 20080805, end: 20081103
  2. NORVIR [Suspect]
     Route: 064
     Dates: start: 20080805, end: 20081103
  3. COMBIVIR [Suspect]
     Dosage: 1 D.F:1 TAB/CAPS
     Route: 064
     Dates: start: 20081103, end: 20090414
  4. KALETRA [Suspect]
     Dosage: TABS/CAPS
     Route: 064
     Dates: start: 20081103

REACTIONS (3)
  - BRADYCARDIA FOETAL [None]
  - PLACENTAL INSUFFICIENCY [None]
  - STILLBIRTH [None]
